FAERS Safety Report 12642764 (Version 1)
Quarter: 2016Q3

REPORT INFORMATION
  Report Type: Spontaneous
  Country: US (occurrence: US)
  Receive Date: 20160811
  Receipt Date: 20160811
  Transmission Date: 20161109
  Serious: Yes (Hospitalization, Other)
  Sender: FDA-Public Use
  Company Number: US-BEH-2016072046

PATIENT
  Age: 55 Year
  Sex: Female
  Weight: 136.5 kg

DRUGS (16)
  1. CEFAZOLIN SODIUM. [Concomitant]
     Active Substance: CEFAZOLIN SODIUM
  2. ACETAMINOPHEN. [Concomitant]
     Active Substance: ACETAMINOPHEN
  3. MIDORINE [Concomitant]
     Active Substance: MIDODRINE
  4. OXYGEN. [Concomitant]
     Active Substance: OXYGEN
  5. PREDNISONE. [Concomitant]
     Active Substance: PREDNISONE
  6. LANTUS [Concomitant]
     Active Substance: INSULIN GLARGINE
  7. RHINOCORT AQUA [Concomitant]
     Active Substance: BUDESONIDE
  8. LEUCOVORIN                         /00566701/ [Concomitant]
     Active Substance: LEUCOVORIN
  9. HIZENTRA [Suspect]
     Active Substance: HUMAN IMMUNOGLOBULIN G
     Indication: IMMUNODEFICIENCY COMMON VARIABLE
     Dosage: 24 G, UNK
     Route: 058
     Dates: start: 20110314
  10. LIDOCAINE/PRILOCAINE [Concomitant]
     Active Substance: LIDOCAINE\PRILOCAINE
  11. EPIPEN [Concomitant]
     Active Substance: EPINEPHRINE
  12. RITUXAN [Concomitant]
     Active Substance: RITUXIMAB
  13. NORPACE [Concomitant]
     Active Substance: DISOPYRAMIDE PHOSPHATE
  14. NEXIUM [Concomitant]
     Active Substance: ESOMEPRAZOLE MAGNESIUM
  15. METHOTREXATE. [Concomitant]
     Active Substance: METHOTREXATE
  16. ALBUTEROL                          /00139501/ [Concomitant]
     Active Substance: ALBUTEROL

REACTIONS (4)
  - Sepsis [Unknown]
  - Pyelonephritis [Unknown]
  - Surgery [Unknown]
  - Arthritis infective [Unknown]

NARRATIVE: CASE EVENT DATE: 201607
